FAERS Safety Report 16016325 (Version 4)
Quarter: 2020Q2

REPORT INFORMATION
  Report Type: Spontaneous
  Country: AU (occurrence: AU)
  Receive Date: 20190228
  Receipt Date: 20200421
  Transmission Date: 20200713
  Serious: No
  Sender: FDA-Public Use
  Company Number: AU-SA-2019SA050878

PATIENT
  Age: 56 Year
  Sex: Female
  Weight: 60 kg

DRUGS (4)
  1. LIPIDIL [Concomitant]
     Active Substance: FENOFIBRATE
  2. CITALOPRAM [Concomitant]
     Active Substance: CITALOPRAM HYDROBROMIDE
  3. SYMBICORT [Concomitant]
     Active Substance: BUDESONIDE\FORMOTEROL FUMARATE DIHYDRATE
  4. DUPILUMAB [Suspect]
     Active Substance: DUPILUMAB
     Indication: DERMATITIS ATOPIC
     Dosage: 300 MG, QOW
     Route: 058

REACTIONS (8)
  - Eye swelling [Not Recovered/Not Resolved]
  - Joint stiffness [Not Recovered/Not Resolved]
  - Conjunctivitis [Recovering/Resolving]
  - Eye pain [Not Recovered/Not Resolved]
  - Dry eye [Recovering/Resolving]
  - Photosensitivity reaction [Recovering/Resolving]
  - Arthralgia [Recovering/Resolving]
  - Swelling of eyelid [Not Recovered/Not Resolved]
